FAERS Safety Report 12878907 (Version 2)
Quarter: 2016Q4

REPORT INFORMATION
  Report Type: Report from Study
  Country: US (occurrence: US)
  Receive Date: 20161024
  Receipt Date: 20161101
  Transmission Date: 20170207
  Serious: Yes (Death)
  Sender: FDA-Public Use
  Company Number: US-ACTELION-A-NJ2015-121802

PATIENT
  Age: 74 Year
  Sex: Male

DRUGS (10)
  1. PROSCAR [Concomitant]
     Active Substance: FINASTERIDE
  2. OXYGEN. [Concomitant]
     Active Substance: OXYGEN
  3. TREPROSTINIL DIOLAMIN [Suspect]
     Active Substance: TREPROSTINIL DIOLAMINE
     Indication: PRODUCT USED FOR UNKNOWN INDICATION
     Dosage: 3.75 MG, TID
     Route: 065
  4. TRACLEER [Suspect]
     Active Substance: BOSENTAN
     Indication: PULMONARY ARTERIAL HYPERTENSION
     Dosage: 125 MG, BID
     Route: 048
     Dates: start: 20081029, end: 2016
  5. SILDENAFIL. [Concomitant]
     Active Substance: SILDENAFIL
  6. TREPROSTINIL [Concomitant]
     Active Substance: TREPROSTINIL
     Dosage: 4.25 MG, TID
  7. IMODIUM [Concomitant]
     Active Substance: LOPERAMIDE HYDROCHLORIDE
  8. TYVASO [Concomitant]
     Active Substance: TREPROSTINIL
  9. FLOMAX [Concomitant]
     Active Substance: TAMSULOSIN HYDROCHLORIDE
  10. LEVAQUIN [Concomitant]
     Active Substance: LEVOFLOXACIN

REACTIONS (17)
  - Limb injury [Unknown]
  - Pain in extremity [Unknown]
  - Pulmonary hypertension [Fatal]
  - Renal disorder [Unknown]
  - Diarrhoea [Unknown]
  - Loss of consciousness [Unknown]
  - Dyspnoea [Unknown]
  - Right ventricular failure [Fatal]
  - Gastritis [Unknown]
  - Abdominal pain upper [Unknown]
  - Fluid retention [Unknown]
  - Fall [Unknown]
  - Syncope [Unknown]
  - Oedema [Unknown]
  - Blood potassium decreased [Unknown]
  - Bladder spasm [Unknown]
  - Urinary tract infection [Unknown]

NARRATIVE: CASE EVENT DATE: 201507
